FAERS Safety Report 17855870 (Version 3)
Quarter: 2020Q2

REPORT INFORMATION
  Report Type: Spontaneous
  Country: US (occurrence: US)
  Receive Date: 20200603
  Receipt Date: 20200617
  Transmission Date: 20200714
  Serious: Yes (Hospitalization, Other)
  Sender: FDA-Public Use
  Company Number: NVSC2020US149438

PATIENT
  Age: 30 Year
  Sex: Female

DRUGS (10)
  1. LITHIUM. [Suspect]
     Active Substance: LITHIUM
     Indication: PRODUCT USED FOR UNKNOWN INDICATION
     Dosage: UNK
     Route: 065
  2. VALPROATE SODIUM. [Suspect]
     Active Substance: VALPROATE SODIUM
     Indication: SCHIZOAFFECTIVE DISORDER
  3. VALPROATE SODIUM. [Suspect]
     Active Substance: VALPROATE SODIUM
     Indication: HYPOMANIA
     Dosage: 2500 MG, QD (GRADUALLY TITERED)
     Route: 065
  4. VALPROATE SODIUM. [Suspect]
     Active Substance: VALPROATE SODIUM
     Indication: DRUG THERAPY
     Dosage: INITIAL DOSE
     Route: 065
  5. RISPERIDONE. [Suspect]
     Active Substance: RISPERIDONE
     Indication: HYPOMANIA
  6. RISPERIDONE. [Suspect]
     Active Substance: RISPERIDONE
     Indication: DRUG THERAPY
  7. ETHINYLESTRADIOL/NORGESTREL [Suspect]
     Active Substance: ETHINYL ESTRADIOL\NORGESTREL
     Indication: HORMONAL CONTRACEPTION
     Dosage: UNK
     Route: 062
  8. RISPERIDONE. [Suspect]
     Active Substance: RISPERIDONE
     Indication: SCHIZOAFFECTIVE DISORDER
     Dosage: 4 MG
     Route: 065
  9. FLUOXETINE [Suspect]
     Active Substance: FLUOXETINE HYDROCHLORIDE
     Indication: SCHIZOAFFECTIVE DISORDER
     Dosage: 20 MG
     Route: 065
  10. FLUOXETINE [Suspect]
     Active Substance: FLUOXETINE HYDROCHLORIDE
     Indication: DRUG THERAPY

REACTIONS (6)
  - Maternal exposure during pregnancy [Unknown]
  - Pregnancy with contraceptive patch [Unknown]
  - Intentional overdose [Unknown]
  - Schizoaffective disorder [Unknown]
  - Live birth [Unknown]
  - Product use in unapproved indication [Unknown]
